FAERS Safety Report 12979148 (Version 22)
Quarter: 2021Q3

REPORT INFORMATION
  Report Type: Spontaneous
  Country: BR (occurrence: BR)
  Receive Date: 20161128
  Receipt Date: 20210914
  Transmission Date: 20211014
  Serious: Yes (Other)
  Sender: FDA-Public Use
  Company Number: BR-GLAXOSMITHKLINE-BR2016GSK087434

PATIENT
  Sex: Female
  Weight: 69 kg

DRUGS (6)
  1. AZATHIOPRINE. [Suspect]
     Active Substance: AZATHIOPRINE
     Indication: PRODUCT USED FOR UNKNOWN INDICATION
     Dosage: UNK
     Dates: start: 2017
  2. BENLYSTA [Suspect]
     Active Substance: BELIMUMAB
     Indication: SYSTEMIC LUPUS ERYTHEMATOSUS
     Dosage: UNK, 600 MG
     Dates: start: 20160315
  3. PREDNISONE. [Suspect]
     Active Substance: PREDNISONE
     Indication: PRODUCT USED FOR UNKNOWN INDICATION
     Dosage: UNK
     Dates: start: 2014
  4. BENLYSTA [Suspect]
     Active Substance: BELIMUMAB
     Dosage: UNK, 200 MG
  5. BENLYSTA [Suspect]
     Active Substance: BELIMUMAB
     Dosage: UNK, 400 MG
  6. COVID?19 VACCINE [Concomitant]
     Indication: COVID-19 PROPHYLAXIS
     Dosage: UNK

REACTIONS (17)
  - Rhinorrhoea [Unknown]
  - Inappropriate schedule of product administration [Unknown]
  - Pneumonia [Unknown]
  - Orthodontic procedure [Unknown]
  - Product supply issue [Unknown]
  - Swelling [Unknown]
  - Weight decreased [Unknown]
  - Varicose vein [Recovered/Resolved]
  - Circumstance or information capable of leading to medication error [Unknown]
  - Nasopharyngitis [Unknown]
  - Dental operation [Unknown]
  - Influenza [Unknown]
  - Weight increased [Unknown]
  - Underdose [Unknown]
  - Product dose omission issue [Unknown]
  - Urinary tract infection [Unknown]
  - Social problem [Unknown]
